FAERS Safety Report 8853217 (Version 1)
Quarter: 2012Q4

REPORT INFORMATION
  Report Type: 
  Country: US (occurrence: US)
  Receive Date: 20121022
  Receipt Date: 20121022
  Transmission Date: 20130627
  Serious: Yes (Other)
  Sender: FDA-Public Use
  Company Number: PHHY2012US092814

PATIENT
  Age: 70 Year
  Sex: Male

DRUGS (3)
  1. ASCRIPTIN BUFFERED ARTHRITISPAIN CAPLETS [Suspect]
     Indication: ARTHRITIS
     Dosage: 4 DF, QD
     Route: 048
     Dates: start: 1987
  2. ASCRIPTIN BUFFERED ARTHRITISPAIN CAPLETS [Suspect]
     Dosage: 1 DF, QD
     Route: 048
  3. COUMADIN [Concomitant]
     Indication: ANTICOAGULANT THERAPY
     Route: 048
     Dates: start: 1992, end: 1997

REACTIONS (2)
  - Myocardial infarction [Recovered/Resolved]
  - Incorrect drug administration duration [Unknown]
